FAERS Safety Report 12457305 (Version 1)
Quarter: 2016Q2

REPORT INFORMATION
  Report Type: Spontaneous
  Country: FR (occurrence: FR)
  Receive Date: 20160610
  Receipt Date: 20160610
  Transmission Date: 20160815
  Serious: Yes (Hospitalization, Other)
  Sender: FDA-Public Use
  Company Number: FR-SA-2016SA107683

PATIENT
  Age: 68 Year
  Sex: Female

DRUGS (3)
  1. CALCIUM LEVOFOLINATE [Suspect]
     Active Substance: LEVOLEUCOVORIN CALCIUM
     Route: 042
     Dates: start: 20160210, end: 20160211
  2. FLUOROURACILE [Suspect]
     Active Substance: FLUOROURACIL
     Route: 042
     Dates: start: 20160210, end: 20160211
  3. ELOXATIN [Suspect]
     Active Substance: OXALIPLATIN
     Route: 042
     Dates: start: 20160210, end: 20160211

REACTIONS (4)
  - Colitis [Unknown]
  - Neutropenia [Recovering/Resolving]
  - Aphthous ulcer [Unknown]
  - Thrombocytopenia [Recovering/Resolving]

NARRATIVE: CASE EVENT DATE: 20160218
